FAERS Safety Report 8140114-6 (Version None)
Quarter: 2012Q1

REPORT INFORMATION
  Report Type: 
  Country: None (occurrence: None)
  Receive Date: 20120216
  Receipt Date: 20120203
  Transmission Date: 20120608
  Serious: Yes (Other)
  Sender: FDA-Public Use
  Company Number: BR-AMGEN-BRASP2012009121

PATIENT
  Age: 65 Year
  Sex: Female
  Weight: 70 kg

DRUGS (8)
  1. ENBREL [Suspect]
     Dosage: 50 MG, QWK
     Route: 058
     Dates: start: 20111001
  2. ARNICA MONTANA [Concomitant]
     Indication: PAIN
     Dosage: 20 GTT, 1X/DAY
  3. ENBREL [Suspect]
     Indication: PSORIATIC ARTHROPATHY
     Dosage: UNK
     Route: 058
     Dates: start: 20101101
  4. VITAMIN D [Concomitant]
     Dosage: 800 IU, 1X/DAY
  5. OMEPRAZOLE [Concomitant]
     Dosage: UNK
  6. FORMOTEROL FUMARATE [Concomitant]
     Indication: BRONCHITIS
     Dosage: 400MG (TWO CAPSULES) ONCE DAILY OR IN CRISIS TWICE DAILY
  7. CALCIUM CARBONATE [Concomitant]
     Dosage: 500 MG, 2X/DAY
  8. IBUPROFEN [Concomitant]
     Indication: PAIN
     Dosage: UNK

REACTIONS (10)
  - FINGER DEFORMITY [None]
  - GAIT DISTURBANCE [None]
  - BLOOD TRIGLYCERIDES ABNORMAL [None]
  - WEIGHT INCREASED [None]
  - INJECTION SITE PAIN [None]
  - PSORIASIS [None]
  - WRONG TECHNIQUE IN DRUG USAGE PROCESS [None]
  - BLOOD CHOLESTEROL ABNORMAL [None]
  - INJECTION SITE HYPERSENSITIVITY [None]
  - OEDEMA PERIPHERAL [None]
